FAERS Safety Report 5210721-9 (Version None)
Quarter: 2007Q1

REPORT INFORMATION
  Report Type: 
  Country: None (occurrence: None)
  Receive Date: 20070116
  Receipt Date: 20070116
  Transmission Date: 20070707
  Serious: Yes (Other)
  Sender: FDA-Public Use
  Company Number: None

PATIENT
  Age: 48 Year
  Sex: Female
  Weight: 83.9154 kg

DRUGS (2)
  1. SERTRALINE [Suspect]
     Indication: DEPRESSION
     Dosage: 200 MG ONCE A DAY PO
     Route: 048
     Dates: start: 20061201, end: 20061220
  2. SERTRALINE [Suspect]
     Indication: PANIC ATTACK
     Dosage: 200 MG ONCE A DAY PO
     Route: 048
     Dates: start: 20061201, end: 20061220

REACTIONS (4)
  - DEPRESSION [None]
  - DRUG INEFFECTIVE [None]
  - PANIC DISORDER [None]
  - PHARMACEUTICAL PRODUCT COMPLAINT [None]
